FAERS Safety Report 7154275-9 (Version None)
Quarter: 2010Q4

REPORT INFORMATION
  Report Type: 
  Country: None (occurrence: None)
  Receive Date: 20101213
  Receipt Date: 20101203
  Transmission Date: 20110411
  Serious: Yes (Other)
  Sender: FDA-Public Use
  Company Number: US-ROCHE-745970

PATIENT
  Sex: Female

DRUGS (2)
  1. BONIVA [Suspect]
     Indication: OSTEOPOROSIS
     Dosage: INDICATION: OSTEOPENIA, DURATION: 2.5 YEARS
     Route: 065
     Dates: start: 20060601, end: 20081201
  2. FOSAMAX [Suspect]
     Indication: OSTEOPOROSIS
     Dosage: INDICATION: OSTEOPENIA
     Route: 065
     Dates: start: 20030101, end: 20051101

REACTIONS (2)
  - FEMUR FRACTURE [None]
  - LOW TURNOVER OSTEOPATHY [None]
